FAERS Safety Report 5963221-2 (Version None)
Quarter: 2008Q4

REPORT INFORMATION
  Report Type: 
  Country: None (occurrence: None)
  Receive Date: 20081124
  Receipt Date: 20081117
  Transmission Date: 20090506
  Serious: Yes (Hospitalization, Other)
  Sender: FDA-Public Use
  Company Number: FR-JNJFOC-20080802932

PATIENT
  Sex: Female
  Weight: 67 kg

DRUGS (10)
  1. RISPERDAL CONSTA [Suspect]
     Route: 030
  2. RISPERDAL CONSTA [Suspect]
     Route: 030
  3. RISPERDAL CONSTA [Suspect]
     Indication: PSYCHOTIC DISORDER
     Route: 030
  4. ANTIBIOTIC [Suspect]
     Indication: THERMAL BURN
     Route: 048
  5. PHENOBARBITAL TAB [Suspect]
     Route: 048
  6. PHENOBARBITAL TAB [Suspect]
     Indication: EPILEPSY
     Route: 048
  7. LAMICTAL [Concomitant]
     Route: 048
  8. LAMICTAL [Concomitant]
     Indication: EPILEPSY
     Route: 048
  9. DIHYDAN [Concomitant]
     Route: 065
  10. DIHYDAN [Concomitant]
     Indication: EPILEPSY
     Route: 065

REACTIONS (2)
  - HEPATITIS [None]
  - LABORATORY TEST ABNORMAL [None]
